FAERS Safety Report 10586915 (Version 1)
Quarter: 2014Q4

REPORT INFORMATION
  Report Type: Spontaneous
  Country: US (occurrence: None)
  Receive Date: 20141114
  Receipt Date: 20141114
  Transmission Date: 20150529
  Serious: Yes (Other)
  Sender: FDA-Public Use
  Company Number: None

PATIENT
  Age: 24 Year
  Sex: Female
  Weight: 43.09 kg

DRUGS (1)
  1. MIFEPREX [Suspect]
     Active Substance: MIFEPRISTONE
     Indication: ABORTION INDUCED
     Dosage: 3 PILLS; SINGLE DOSE
     Route: 048
     Dates: start: 20141110, end: 20141110

REACTIONS (3)
  - Abortion induced [None]
  - Vaginal haemorrhage [None]
  - Drug ineffective [None]

NARRATIVE: CASE EVENT DATE: 20141112
